FAERS Safety Report 4267169-3 (Version None)
Quarter: 2004Q1

REPORT INFORMATION
  Report Type: 
  Country: None (occurrence: None)
  Receive Date: 20040107
  Receipt Date: 20031222
  Transmission Date: 20041129
  Serious: No
  Sender: FDA-Public Use
  Company Number: 200314572BCC

PATIENT
  Age: 84 Year
  Sex: Female

DRUGS (9)
  1. ALEVE (CAPLET) [Suspect]
     Indication: ARTHRALGIA
     Dosage: SEE IMAGE
     Route: 048
     Dates: start: 20031206
  2. ALEVE (CAPLET) [Suspect]
     Indication: UPPER LIMB FRACTURE
     Dosage: SEE IMAGE
     Route: 048
     Dates: start: 20031206
  3. ALEVE (CAPLET) [Suspect]
     Indication: ARTHRALGIA
     Dosage: SEE IMAGE
     Route: 048
     Dates: start: 20031207
  4. ALEVE (CAPLET) [Suspect]
     Indication: UPPER LIMB FRACTURE
     Dosage: SEE IMAGE
     Route: 048
     Dates: start: 20031207
  5. NEXIUM [Concomitant]
  6. ZOLOFT [Concomitant]
  7. ISORBIDE [Concomitant]
  8. LANOXIN [Concomitant]
  9. POTASSIUM [Concomitant]

REACTIONS (3)
  - ARTHRALGIA [None]
  - OESOPHAGITIS [None]
  - PAIN IN EXTREMITY [None]
